FAERS Safety Report 10426601 (Version 1)
Quarter: 2014Q3

REPORT INFORMATION
  Report Type: Spontaneous
  Country: US (occurrence: None)
  Receive Date: 20140902
  Receipt Date: 20140902
  Transmission Date: 20150326
  Serious: Yes (Hospitalization)
  Sender: FDA-Public Use
  Company Number: None

PATIENT
  Age: 74 Year
  Sex: Female
  Weight: 97.52 kg

DRUGS (12)
  1. FUROSEMIDE. [Concomitant]
     Active Substance: FUROSEMIDE
  2. NEURONTIN [Concomitant]
     Active Substance: GABAPENTIN
  3. ALBUTEROL. [Concomitant]
     Active Substance: ALBUTEROL
  4. K-DUR [Concomitant]
     Active Substance: POTASSIUM CHLORIDE
  5. QUETIAPINE [Concomitant]
     Active Substance: QUETIAPINE
  6. XGEVA [Suspect]
     Active Substance: DENOSUMAB
     Indication: METASTASES TO BONE
     Dosage: 120MG, EVERY 4 WEEKS, INTRAMUSCULAR
     Route: 030
     Dates: start: 20140528
  7. AMLODIPINE [Concomitant]
     Active Substance: AMLODIPINE BESYLATE
  8. XANAX [Concomitant]
     Active Substance: ALPRAZOLAM
  9. FASLODEX [Concomitant]
     Active Substance: FULVESTRANT
  10. XGEVA [Suspect]
     Active Substance: DENOSUMAB
     Indication: BREAST CANCER
     Dosage: 120MG, EVERY 4 WEEKS, INTRAMUSCULAR
     Route: 030
     Dates: start: 20140528
  11. FENTANYL. [Concomitant]
     Active Substance: FENTANYL
  12. DEXAMETHASONE. [Concomitant]
     Active Substance: DEXAMETHASONE

REACTIONS (2)
  - Blood albumin increased [None]
  - Blood calcium decreased [None]

NARRATIVE: CASE EVENT DATE: 20140611
